FAERS Safety Report 7218204-1 (Version None)
Quarter: 2011Q1

REPORT INFORMATION
  Report Type: 
  Country: None (occurrence: None)
  Receive Date: 20110110
  Receipt Date: 20110105
  Transmission Date: 20110831
  Serious: Yes (Death, Hospitalization, Other)
  Sender: FDA-Public Use
  Company Number: PHHY2009TW60823

PATIENT
  Sex: Male

DRUGS (4)
  1. SUTENT [Suspect]
     Dosage: 25 MG, UNK
     Route: 048
  2. SUTENT [Suspect]
     Dosage: 2 DF, 100 MG
     Route: 048
  3. GLEEVEC [Suspect]
     Dosage: 800 MG, UNK
     Dates: start: 20060801
  4. SUTENT [Suspect]
     Indication: GASTROINTESTINAL STROMAL TUMOUR
     Dosage: 3 DF, UNK
     Route: 048
     Dates: start: 20100201

REACTIONS (16)
  - HERNIA [None]
  - PNEUMONIA [None]
  - ARTHRITIS [None]
  - NAUSEA [None]
  - PALPITATIONS [None]
  - PYREXIA [None]
  - VOMITING [None]
  - ABDOMINAL PAIN [None]
  - PAIN [None]
  - NEOPLASM [None]
  - DRY SKIN [None]
  - DEATH [None]
  - DIAPHRAGMATIC DISORDER [None]
  - DYSPNOEA [None]
  - ABDOMINAL DISTENSION [None]
  - MUSCULOSKELETAL STIFFNESS [None]
